FAERS Safety Report 18202888 (Version 1)
Quarter: 2020Q3

REPORT INFORMATION
  Report Type: Report from Study
  Country: CA (occurrence: CA)
  Receive Date: 20200827
  Receipt Date: 20200827
  Transmission Date: 20201103
  Serious: Yes (Other)
  Sender: FDA-Public Use
  Company Number: PHHY2019CA217734

PATIENT
  Sex: Female

DRUGS (4)
  1. ADVIL COLD AND SINUS [Concomitant]
     Active Substance: IBUPROFEN\PSEUDOEPHEDRINE HYDROCHLORIDE
     Indication: PRODUCT USED FOR UNKNOWN INDICATION
     Dosage: UNK
     Route: 065
  2. COSENTYX [Suspect]
     Active Substance: SECUKINUMAB
     Indication: PSORIATIC ARTHROPATHY
     Dosage: 300 MG, QMO
     Route: 058
     Dates: start: 20190620, end: 20190911
  3. COSENTYX [Suspect]
     Active Substance: SECUKINUMAB
     Dosage: 300 MG, QMO
     Route: 058
     Dates: start: 20190620, end: 20190818
  4. METHOTREXATE. [Concomitant]
     Active Substance: METHOTREXATE
     Indication: PRODUCT USED FOR UNKNOWN INDICATION
     Dosage: UNK
     Route: 065
     Dates: start: 2016

REACTIONS (11)
  - C-reactive protein abnormal [Unknown]
  - Enthesopathy [Not Recovered/Not Resolved]
  - Psoriasis [Unknown]
  - Psoriatic arthropathy [Not Recovered/Not Resolved]
  - General physical health deterioration [Unknown]
  - Fatigue [Unknown]
  - Inflammation [Unknown]
  - Liver function test increased [Unknown]
  - Musculoskeletal stiffness [Unknown]
  - Joint swelling [Not Recovered/Not Resolved]
  - Liver disorder [Unknown]
